FAERS Safety Report 7148032-7 (Version None)
Quarter: 2010Q4

REPORT INFORMATION
  Report Type: 
  Country: None (occurrence: None)
  Receive Date: 20101209
  Receipt Date: 20101201
  Transmission Date: 20110411
  Serious: Yes (Life-Threatening)
  Sender: FDA-Public Use
  Company Number: JP-JNJFOC-20100900827

PATIENT
  Sex: Female

DRUGS (1)
  1. CRAVIT [Suspect]
     Indication: CYSTITIS
     Route: 048

REACTIONS (4)
  - ANAPHYLACTOID REACTION [None]
  - EYELID OEDEMA [None]
  - PHARYNGEAL ERYTHEMA [None]
  - SNEEZING [None]
